FAERS Safety Report 9265933 (Version 2)
Quarter: 2013Q3

REPORT INFORMATION
  Report Type: Report from Study
  Country: US (occurrence: US)
  Receive Date: 20130501
  Receipt Date: 20130911
  Transmission Date: 20140515
  Serious: No
  Sender: FDA-Public Use
  Company Number: US-ASTRAZENECA-2013SE27136

PATIENT
  Age: 57 Year
  Sex: Female

DRUGS (1)
  1. ARIMIDEX [Suspect]
     Indication: NEOPLASM MALIGNANT
     Route: 048

REACTIONS (1)
  - Diplopia [Not Recovered/Not Resolved]
